FAERS Safety Report 18157616 (Version 1)
Quarter: 2020Q3

REPORT INFORMATION
  Report Type: Spontaneous
  Country: SE (occurrence: SE)
  Receive Date: 20200817
  Receipt Date: 20200817
  Transmission Date: 20201103
  Serious: Yes (Disabling)
  Sender: FDA-Public Use
  Company Number: SE-TEVA-2020-SE-1814071

PATIENT
  Age: 45 Year
  Sex: Female
  Weight: 120 kg

DRUGS (3)
  1. PRIMOLUT [Concomitant]
     Dates: start: 20200702, end: 20200712
  2. ESCITALOPRAM ACTAVIS 10 MG FILMDRAGERAD TABLETT [Suspect]
     Active Substance: ESCITALOPRAM OXALATE
     Indication: HORMONE LEVEL ABNORMAL
     Dosage: 10 MG
     Route: 065
     Dates: start: 20200602, end: 20200612
  3. PRIMOLUT [Concomitant]
     Dates: start: 20200602, end: 20200612

REACTIONS (5)
  - Fatigue [Recovering/Resolving]
  - Lethargy [Recovering/Resolving]
  - Headache [Recovering/Resolving]
  - Dizziness [Recovering/Resolving]
  - Cerebral disorder [Recovering/Resolving]

NARRATIVE: CASE EVENT DATE: 202006
